FAERS Safety Report 16150574 (Version 1)
Quarter: 2019Q2

REPORT INFORMATION
  Report Type: Report from Study
  Country: PL (occurrence: PL)
  Receive Date: 20190403
  Receipt Date: 20190403
  Transmission Date: 20190711
  Serious: Yes (Other)
  Sender: FDA-Public Use
  Company Number: PL-ROCHE-2036223

PATIENT
  Age: 71 Year
  Sex: Male
  Weight: 86 kg

DRUGS (16)
  1. METFORMIN HYDROCHLORIDE. [Concomitant]
     Active Substance: METFORMIN HYDROCHLORIDE
     Indication: DIABETES MELLITUS
     Route: 048
  2. CAPTOPRILUM [Concomitant]
     Indication: HYPERTENSION
     Route: 065
     Dates: start: 20171229, end: 20171229
  3. DEXAVEN [Concomitant]
     Active Substance: DEXAMETHASONE
  4. VEMURAFENIB. [Suspect]
     Active Substance: VEMURAFENIB
     Indication: MALIGNANT MELANOMA
     Dosage: DATE OF MOST RECENT DOSE PRIOR TO ANAPHYLACTIC REACTION: 04/DEC/2017?DATE OF MOST RECENT DOSE PRIOR
     Route: 048
     Dates: start: 20171023
  5. DOXAZOSIN [Concomitant]
     Active Substance: DOXAZOSIN\DOXAZOSIN MESYLATE
     Indication: HYPERTENSION
     Route: 048
     Dates: start: 20170509
  6. AMOXICILLIN TRIHYDRATE [Concomitant]
     Active Substance: AMOXICILLIN
     Indication: PNEUMONIA
     Route: 048
     Dates: start: 20171222
  7. ATEZOLIZUMAB. [Suspect]
     Active Substance: ATEZOLIZUMAB
     Indication: MALIGNANT MELANOMA
     Dosage: DATE OF MOST RECENT DOSE PRIOR TO ANAPHYLACTIC REACTION: 04/DEC/2017?DATE OF MOST RECENT DOSE PRIOR
     Route: 042
     Dates: start: 20171120
  8. INSULIN HUMAN ISOPHANE RECOMBINANT [Concomitant]
     Indication: DIABETES MELLITUS
     Dosage: DOSE:
     Route: 058
     Dates: start: 20170903
  9. NEBIVOLOL. [Concomitant]
     Active Substance: NEBIVOLOL
     Indication: HYPERTENSION
     Route: 048
  10. AMLODIPINE [Concomitant]
     Active Substance: AMLODIPINE BESYLATE
     Indication: HYPERTENSION
     Route: 048
  11. HYDROCORTISONUM [Concomitant]
     Active Substance: HYDROCORTISONE
     Route: 042
     Dates: start: 20171229, end: 20171229
  12. CLEMASTINUM [Concomitant]
     Active Substance: CLEMASTINE FUMARATE
     Indication: TREMOR
     Route: 042
     Dates: start: 20171204, end: 20171204
  13. CLEMASTINUM [Concomitant]
     Active Substance: CLEMASTINE FUMARATE
     Route: 042
     Dates: start: 20171229, end: 20171229
  14. COBIMETINIB. [Suspect]
     Active Substance: COBIMETINIB
     Indication: MALIGNANT MELANOMA
     Dosage: DATE OF MOST RECENT DOSE (40 MG) PRIOR TO ANAPHYLACTIC REACTION: 04/DEC/2017?DATE OF MOST RECENT DOS
     Route: 048
     Dates: start: 20171023
  15. GLIMEPIRIDE. [Concomitant]
     Active Substance: GLIMEPIRIDE
     Indication: DIABETES MELLITUS
     Route: 048
  16. RAMIPRIL. [Concomitant]
     Active Substance: RAMIPRIL
     Indication: HYPERTENSION
     Route: 048

REACTIONS (2)
  - Infusion related reaction [Recovered/Resolved]
  - Anaphylactic reaction [Recovered/Resolved]

NARRATIVE: CASE EVENT DATE: 20171204
